FAERS Safety Report 6380218-1 (Version None)
Quarter: 2009Q4

REPORT INFORMATION
  Report Type: 
  Country: None (occurrence: None)
  Receive Date: 20090923
  Receipt Date: 20090910
  Transmission Date: 20100525
  Serious: No
  Sender: FDA-Public Use
  Company Number: B0592543A

PATIENT
  Sex: Female

DRUGS (3)
  1. PAROXETINE HCL [Suspect]
  2. METHYLENE  BLUE (FORMULATION UNKNOWN) (GENERIC)  (METHYLENE BLUE) [Suspect]
  3. ANESTHETIC [Concomitant]

REACTIONS (1)
  - SEROTONIN SYNDROME [None]
